FAERS Safety Report 8601353-0 (Version None)
Quarter: 2012Q3

REPORT INFORMATION
  Report Type: 
  Country: None (occurrence: None)
  Receive Date: 20120817
  Receipt Date: 20120809
  Transmission Date: 20120928
  Serious: Yes (Other)
  Sender: FDA-Public Use
  Company Number: US-JNJFOC-20100806072

PATIENT
  Sex: Male

DRUGS (4)
  1. LEVAQUIN [Suspect]
     Indication: INCISION SITE INFECTION
     Route: 048
     Dates: start: 20070101, end: 20070101
  2. ATENOLOL [Concomitant]
     Indication: HYPERTENSION
     Dosage: 8 YEARS AGO TO PRESENT
  3. LANSOPRAZOLE [Concomitant]
     Indication: GASTROOESOPHAGEAL REFLUX DISEASE
     Dosage: 5 YEARS AGO TO PRESENT
  4. LEVAQUIN [Suspect]
     Indication: SINUSITIS
     Route: 048
     Dates: start: 20070101, end: 20070101

REACTIONS (6)
  - PLANTAR FASCIITIS [None]
  - TENOSYNOVITIS [None]
  - TENDON INJURY [None]
  - TENDON RUPTURE [None]
  - JOINT INJURY [None]
  - TENDON DISORDER [None]
